FAERS Safety Report 9615975 (Version 1)
Quarter: 2013Q4

REPORT INFORMATION
  Report Type: Spontaneous
  Country: US (occurrence: None)
  Receive Date: 20131010
  Receipt Date: 20131010
  Transmission Date: 20140711
  Serious: Yes (Other)
  Sender: FDA-Public Use
  Company Number: None

PATIENT
  Age: 45 Year
  Sex: Female
  Weight: 69.85 kg

DRUGS (1)
  1. PARAGARD [Suspect]
     Indication: CONTRACEPTION
     Dates: start: 20061212, end: 20131009

REACTIONS (4)
  - Device expulsion [None]
  - Embedded device [None]
  - Device breakage [None]
  - Medical device complication [None]
